FAERS Safety Report 16867092 (Version 1)
Quarter: 2019Q3

REPORT INFORMATION
  Report Type: Spontaneous
  Country: GB (occurrence: GB)
  Receive Date: 20190930
  Receipt Date: 20190930
  Transmission Date: 20191005
  Serious: Yes (Life-Threatening)
  Sender: FDA-Public Use
  Company Number: GB-TEVA-2019-GB-1113942

PATIENT
  Age: 47 Year
  Sex: Female
  Weight: 49.5 kg

DRUGS (11)
  1. SERTRALINE [Suspect]
     Active Substance: SERTRALINE HYDROCHLORIDE
     Dosage: 50 MG PER DAY
     Dates: start: 20190805
  2. OMEPRAZOLE. [Concomitant]
     Active Substance: OMEPRAZOLE
     Dosage: ON ADMISSION
     Route: 042
     Dates: start: 201908
  3. THIAMINE. [Concomitant]
     Active Substance: THIAMINE
     Dosage: 300 MG PER DAY
     Dates: start: 20190828
  4. CHLORDIAZEPOXIDE. [Concomitant]
     Active Substance: CHLORDIAZEPOXIDE
     Dosage: PER ALCOHOL WITHDRAWL REGIME (CIWA SCALE)
  5. SALBUTAMOL [Concomitant]
     Active Substance: ALBUTEROL
     Dosage: 100MCG/PUFF. PUFFS (RARELY USES).2 DOSAGE FORMS
  6. OMEPRAZOLE. [Concomitant]
     Active Substance: OMEPRAZOLE
     Dosage: 80 MG PER DAY
     Route: 048
     Dates: start: 20190828
  7. FEMOSTON [Concomitant]
     Active Substance: DYDROGESTERONE\ESTRADIOL
     Dosage: 0.1 MG PER DAY
     Dates: start: 20190724
  8. AMOXICILLIN. [Concomitant]
     Active Substance: AMOXICILLIN
     Dosage: 2 GM PER DAY
     Dates: start: 20190828
  9. LANSOPRAZOLE. [Concomitant]
     Active Substance: LANSOPRAZOLE
     Dosage: 60 MG PER DAY
     Dates: start: 20190828
  10. QVAR [Concomitant]
     Active Substance: BECLOMETHASONE DIPROPIONATE
     Dosage: PUFFS, 4 DOSAGE FORMS
  11. CLARITHROMYCIN. [Suspect]
     Active Substance: CLARITHROMYCIN
     Indication: HELICOBACTER INFECTION
     Dosage: 1000 MG PER DAY
     Route: 048
     Dates: start: 20190828, end: 20190829

REACTIONS (3)
  - Circulatory collapse [Unknown]
  - Cardiac arrest [Recovered/Resolved]
  - Hypomagnesaemia [Unknown]

NARRATIVE: CASE EVENT DATE: 20190829
